FAERS Safety Report 4440839-X (Version None)
Quarter: 2004Q3

REPORT INFORMATION
  Report Type: 
  Country: None (occurrence: None)
  Receive Date: 20040903
  Receipt Date: 20040805
  Transmission Date: 20050211
  Serious: Yes (Other)
  Sender: FDA-Public Use
  Company Number: AU-GLAXOSMITHKLINE-B0342217A

PATIENT
  Age: 44 Year
  Sex: Female
  Weight: 45 kg

DRUGS (2)
  1. ZYBAN [Suspect]
     Dates: start: 20040715
  2. FLUVAX [Concomitant]
     Indication: PROPHYLAXIS
     Route: 030
     Dates: start: 20040712

REACTIONS (12)
  - ANOREXIA [None]
  - DIZZINESS [None]
  - FLATULENCE [None]
  - MIDDLE INSOMNIA [None]
  - SLEEP DISORDER [None]
  - SOMNOLENCE [None]
  - SPEECH DISORDER [None]
  - THOUGHT BLOCKING [None]
  - TREMOR [None]
  - URTICARIA [None]
  - VISUAL ACUITY REDUCED [None]
  - VISUAL DISTURBANCE [None]
